FAERS Safety Report 18751196 (Version 2)
Quarter: 2021Q1

REPORT INFORMATION
  Report Type: Spontaneous
  Country: US (occurrence: US)
  Receive Date: 20210118
  Receipt Date: 20210219
  Transmission Date: 20210419
  Serious: No
  Sender: FDA-Public Use
  Company Number: US-TAKEDA-2021TUS001206

PATIENT
  Sex: Male
  Weight: 39 kg

DRUGS (8)
  1. GATTEX [Suspect]
     Active Substance: TEDUGLUTIDE\WATER
     Indication: PRODUCT USED FOR UNKNOWN INDICATION
     Route: 065
  2. GATTEX [Suspect]
     Active Substance: TEDUGLUTIDE\WATER
     Indication: PRODUCT USED FOR UNKNOWN INDICATION
     Route: 065
  3. GATTEX [Suspect]
     Active Substance: TEDUGLUTIDE\WATER
     Dosage: UNK UNK, QD
     Route: 065
     Dates: start: 20200207
  4. GATTEX [Suspect]
     Active Substance: TEDUGLUTIDE\WATER
     Indication: PRODUCT USED FOR UNKNOWN INDICATION
     Route: 065
  5. GATTEX [Suspect]
     Active Substance: TEDUGLUTIDE\WATER
     Indication: PRODUCT USED FOR UNKNOWN INDICATION
     Route: 065
  6. GATTEX [Suspect]
     Active Substance: TEDUGLUTIDE\WATER
     Dosage: UNK UNK, QD
     Route: 065
     Dates: start: 20200207
  7. GATTEX [Suspect]
     Active Substance: TEDUGLUTIDE\WATER
     Dosage: UNK UNK, QD
     Route: 065
     Dates: start: 20200207
  8. GATTEX [Suspect]
     Active Substance: TEDUGLUTIDE\WATER
     Dosage: UNK UNK, QD
     Route: 065
     Dates: start: 20200207

REACTIONS (4)
  - No adverse event [Unknown]
  - Product dose omission issue [Unknown]
  - Product distribution issue [Unknown]
  - Product availability issue [Unknown]
